FAERS Safety Report 10419022 (Version 1)
Quarter: 2014Q2

REPORT INFORMATION
  Report Type: Spontaneous
  Country: US (occurrence: None)
  Receive Date: 20140625
  Receipt Date: 20140625
  Transmission Date: 20141212
  Serious: No
  Sender: FDA-Public Use
  Company Number: A-US2014-96500

PATIENT
  Age: 61 Year
  Sex: Female

DRUGS (9)
  1. OPSUMIT (MACITENTAN) [Suspect]
     Indication: PULMONARY ARTERIAL HYPERTENSION
     Route: 048
     Dates: start: 20140219
  2. SINGULAR (MONTELUKAST SODIUM) [Concomitant]
  3. BENTYL (DICYCLOVERINE HYDROCHLORIDE) [Concomitant]
  4. FLONASE (FLUTICASONE PROPIONATE) [Concomitant]
  5. LAMICTAL (LAMOTRIGINE) [Concomitant]
  6. PRILOSEC (OMEPRAZOLE MAGNESIUM) [Concomitant]
  7. SEROQUEL (QUETIAPINE FUMARATE) [Concomitant]
  8. TOPAMAX (TOPIRAMATE) [Concomitant]
  9. GABAPENTIN [Concomitant]

REACTIONS (2)
  - Arthralgia [None]
  - Oedema peripheral [None]
